FAERS Safety Report 9164493 (Version 1)
Quarter: 2013Q1

REPORT INFORMATION
  Report Type: Spontaneous
  Country: BR (occurrence: BR)
  Receive Date: 20130315
  Receipt Date: 20130315
  Transmission Date: 20140127
  Serious: Yes (Other)
  Sender: FDA-Public Use
  Company Number: PHHY2013BR011239

PATIENT
  Age: 70 Year
  Sex: Female

DRUGS (4)
  1. DIOVAN [Suspect]
     Indication: HYPERTENSION
     Dosage: 160 MG DAILY
     Route: 048
  2. INFLUENZA VACCINE [Suspect]
     Dosage: UNK UKN, UNK
     Dates: start: 20050518
  3. PNEUMOCOCCAL VACCINE POLYVALENT [Suspect]
     Dosage: UNK UKN, UNK
     Dates: start: 20010821
  4. PNEUMOCOCCAL VACCINE POLYVALENT [Suspect]
     Dosage: UNK UKN, UNK
     Dates: start: 20090525

REACTIONS (6)
  - Myelopathy [Not Recovered/Not Resolved]
  - Spinal compression fracture [Not Recovered/Not Resolved]
  - Kyphosis [Not Recovered/Not Resolved]
  - Blood pressure systolic increased [Recovered/Resolved]
  - Tachycardia [Recovering/Resolving]
  - Drug ineffective [Unknown]
